FAERS Safety Report 8645479 (Version 4)
Quarter: 2012Q4

REPORT INFORMATION
  Report Type: Report from Study
  Country: MX (occurrence: MX)
  Receive Date: 20120702
  Receipt Date: 20121018
  Transmission Date: 20130627
  Serious: Yes (Hospitalization)
  Sender: FDA-Public Use
  Company Number: MX-ROCHE-1082898

PATIENT
  Age: 66 Year
  Sex: Female
  Weight: 65 kg

DRUGS (3)
  1. BEVACIZUMAB [Suspect]
     Indication: OVARIAN CANCER
     Dosage: dosage form: 7.5 mg/kg
     Route: 042
     Dates: start: 20120627, end: 20120627
  2. CARBOPLATIN [Suspect]
     Indication: OVARIAN CANCER
     Dosage: last dose received prior to AE onset 09/May/2012
     Route: 042
     Dates: start: 20120418
  3. PACLITAXEL [Suspect]
     Indication: OVARIAN CANCER
     Dosage: last dose received prior to AE onset 09/May/2012
     Route: 042
     Dates: start: 20120418

REACTIONS (1)
  - Renal failure acute [Recovered/Resolved]
